FAERS Safety Report 6477422-0 (Version None)
Quarter: 2009Q4

REPORT INFORMATION
  Report Type: 
  Country: None (occurrence: None)
  Receive Date: 20091207
  Receipt Date: 20091119
  Transmission Date: 20100525
  Serious: Yes (Other)
  Sender: FDA-Public Use
  Company Number: CA-SANOFI-AVENTIS-200920792GDDC

PATIENT
  Age: 53 Year
  Sex: Female

DRUGS (6)
  1. LANTUS [Suspect]
     Route: 058
     Dates: start: 20090910, end: 20090912
  2. SOLOSTAR [Suspect]
     Dates: start: 20090910, end: 20090912
  3. HUMALOG [Concomitant]
     Route: 058
  4. ALTACE [Concomitant]
     Route: 048
  5. SYNTHROID [Concomitant]
     Route: 048
  6. LIPITOR [Concomitant]
     Route: 048

REACTIONS (3)
  - DERMATITIS BULLOUS [None]
  - HYPERSENSITIVITY [None]
  - PRURITUS [None]
